FAERS Safety Report 22263933 (Version 1)
Quarter: 2023Q2

REPORT INFORMATION
  Report Type: Spontaneous
  Country: US (occurrence: None)
  Receive Date: 20230428
  Receipt Date: 20230428
  Transmission Date: 20230722
  Serious: Yes (Other)
  Sender: FDA-Public Use
  Company Number: US-MLMSERVICE-20230413-4208388-2

PATIENT
  Age: 3 Decade
  Sex: Male

DRUGS (8)
  1. CISPLATIN [Suspect]
     Active Substance: CISPLATIN
     Indication: Testicular germ cell cancer metastatic
     Dosage: 20 MG/M2 IV OVER 1 H ON DAYS 1-5
     Route: 065
     Dates: start: 202007
  2. IFOSFAMIDE [Suspect]
     Active Substance: IFOSFAMIDE
     Indication: Testicular germ cell cancer metastatic
     Dosage: 1200 MG/M2 OVER 1 H ON DAYS 1-5
     Route: 065
     Dates: start: 202007
  3. PACLITAXEL [Suspect]
     Active Substance: PACLITAXEL
     Indication: Testicular germ cell cancer metastatic
     Dosage: 120 MG/M2 IV OVER 3 H ON DAYS 1 AND 2
     Route: 065
     Dates: start: 202007
  4. SODIUM CHLORIDE [Concomitant]
     Active Substance: SODIUM CHLORIDE
     Indication: Product used for unknown indication
     Route: 065
     Dates: start: 202007
  5. MESNA [Concomitant]
     Active Substance: MESNA
     Indication: Product used for unknown indication
     Dosage: 6 H AFTER IFOSFAMIDE
     Route: 065
  6. MESNA [Concomitant]
     Active Substance: MESNA
     Dosage: IMMEDIATELY PRIOR TO IFOSFAMIDE AND 4 H AFTER IFOSFAMIDE
     Route: 065
     Dates: start: 202007
  7. MAGNESIUM SULFATE [Concomitant]
     Active Substance: MAGNESIUM SULFATE
     Indication: Product used for unknown indication
     Route: 065
     Dates: start: 202007
  8. POTASSIUM CHLORIDE [Concomitant]
     Active Substance: POTASSIUM CHLORIDE
     Indication: Product used for unknown indication
     Route: 065
     Dates: start: 202007

REACTIONS (1)
  - Febrile neutropenia [Unknown]
